FAERS Safety Report 4712044-0 (Version None)
Quarter: 2005Q3

REPORT INFORMATION
  Report Type: 
  Country: None (occurrence: None)
  Receive Date: 20050712
  Receipt Date: 20050627
  Transmission Date: 20060218
  Serious: Yes (Death)
  Sender: FDA-Public Use
  Company Number: NL-JNJFOC-20050507185

PATIENT

DRUGS (12)
  1. TOPAMAX [Suspect]
  2. ACETAMINOPHEN [Concomitant]
     Indication: PAIN
     Route: 049
  3. AUGMENTIN '125' [Concomitant]
     Route: 042
  4. AUGMENTIN '125' [Concomitant]
     Indication: INFECTION
     Route: 042
  5. LUMINAL [Concomitant]
  6. NITRAZEPAM [Concomitant]
  7. SABRIL [Concomitant]
     Route: 049
  8. BACTRIMEL [Concomitant]
     Route: 049
  9. BACTRIMEL [Concomitant]
     Indication: INFECTION
     Route: 049
  10. PULMICORT [Concomitant]
     Indication: LUNG DISORDER
     Route: 055
  11. ATROVENT [Concomitant]
     Indication: LUNG DISORDER
  12. VENTOLIN [Concomitant]
     Indication: LUNG DISORDER

REACTIONS (5)
  - AGITATION [None]
  - CONVULSION [None]
  - PAIN [None]
  - RESPIRATORY FAILURE [None]
  - RESPIRATORY TRACT INFECTION [None]
